FAERS Safety Report 4569434-9 (Version None)
Quarter: 2005Q1

REPORT INFORMATION
  Report Type: 
  Country: None (occurrence: None)
  Receive Date: 20050118
  Receipt Date: 20040304
  Transmission Date: 20050727
  Serious: Yes (Other)
  Sender: FDA-Public Use
  Company Number: HQWYE643209MAR04

PATIENT
  Age: 65 Year
  Sex: Female
  Weight: 81.72 kg

DRUGS (2)
  1. PREMPRO [Suspect]
     Indication: HOT FLUSH
     Dosage: 0.625MG /5 MG DAILY, ORAL
     Route: 048
     Dates: start: 20020101, end: 20040305
  2. AUGMENTIN - SLOW RELEASE [Suspect]
     Indication: INFLUENZA
     Dosage: ORAL
     Route: 048
     Dates: start: 20040101, end: 20040101

REACTIONS (3)
  - DRUG INTERACTION [None]
  - METRORRHAGIA [None]
  - VAGINAL CANDIDIASIS [None]
